FAERS Safety Report 9539564 (Version 1)
Quarter: 2013Q3

REPORT INFORMATION
  Report Type: Report from Study
  Country: BG (occurrence: BG)
  Receive Date: 20130920
  Receipt Date: 20130920
  Transmission Date: 20140515
  Serious: Yes (Other)
  Sender: FDA-Public Use
  Company Number: BG-ASTRAZENECA-2013SE68716

PATIENT
  Sex: 0

DRUGS (3)
  1. PROPOFOL [Suspect]
     Indication: INDUCTION OF ANAESTHESIA
     Route: 042
  2. OPIOID [Concomitant]
     Indication: INDUCTION OF ANAESTHESIA
  3. MUSCLE RELAXANT [Concomitant]

REACTIONS (2)
  - Respiratory failure [Unknown]
  - Bronchospasm [Unknown]
